FAERS Safety Report 7597304-0 (Version None)
Quarter: 2011Q3

REPORT INFORMATION
  Report Type: 
  Country: None (occurrence: None)
  Receive Date: 20110708
  Receipt Date: 20110418
  Transmission Date: 20111222
  Serious: No
  Sender: FDA-Public Use
  Company Number: US-GLAXOSMITHKLINE-A0923365A

PATIENT
  Age: 60 Year
  Sex: Female

DRUGS (12)
  1. VITAMIN D [Concomitant]
  2. SINGULAIR [Concomitant]
  3. SPIRIVA [Concomitant]
  4. ALBUTEROL [Concomitant]
  5. FEXOFENADINE [Concomitant]
  6. BONIVA [Concomitant]
  7. PROAIR HFA [Concomitant]
  8. ASCORBIC ACID [Concomitant]
  9. FLOVENT [Suspect]
     Indication: ASTHMA
     Dosage: 2PUFF TWICE PER DAY
     Route: 055
     Dates: start: 20080101
  10. CALCIUM CARBONATE [Concomitant]
  11. BROVANA [Concomitant]
  12. VITAMIN E [Concomitant]

REACTIONS (2)
  - DRUG INEFFECTIVE [None]
  - PRODUCT QUALITY ISSUE [None]
